FAERS Safety Report 17505234 (Version 5)
Quarter: 2020Q1

REPORT INFORMATION
  Report Type: Report from Study
  Country: CA (occurrence: CA)
  Receive Date: 20200306
  Receipt Date: 20200330
  Transmission Date: 20200409
  Serious: Yes (Other)
  Sender: FDA-Public Use
  Company Number: CA-UCBSA-2020008530

PATIENT
  Age: 34 Year
  Sex: Female

DRUGS (2)
  1. CERTOLIZUMAB PEGOL AUTOCLICKS [Suspect]
     Active Substance: CERTOLIZUMAB PEGOL
     Indication: ANKYLOSING SPONDYLITIS
     Dosage: 400 MILLIGRAM, EV 2 WEEKS(QOW)
     Route: 058
     Dates: start: 20200214
  2. CERTOLIZUMAB PEGOL AUTOCLICKS [Suspect]
     Active Substance: CERTOLIZUMAB PEGOL
     Dosage: 200 MILLIGRAM, EV 2 WEEKS(QOW)
     Route: 058
     Dates: start: 20200221

REACTIONS (13)
  - Paraesthesia [Recovering/Resolving]
  - Injection site pain [Unknown]
  - Menstruation irregular [Not Recovered/Not Resolved]
  - Hangover [Unknown]
  - Headache [Unknown]
  - Pain [Unknown]
  - Injection site bruising [Unknown]
  - Fatigue [Unknown]
  - Injection site discolouration [Recovered/Resolved]
  - Off label use [Unknown]
  - Oropharyngeal pain [Unknown]
  - Nausea [Unknown]
  - Hypoaesthesia [Recovering/Resolving]

NARRATIVE: CASE EVENT DATE: 202002
